FAERS Safety Report 21730274 (Version 4)
Quarter: 2025Q3

REPORT INFORMATION
  Report Type: Report from Study
  Country: CA (occurrence: CA)
  Receive Date: 20221214
  Receipt Date: 20250711
  Transmission Date: 20251021
  Serious: Yes (Other)
  Sender: JOHNSON AND JOHNSON
  Company Number: CA-JNJFOC-20221220484

PATIENT
  Age: 52 Year
  Sex: Male
  Weight: 83 kg

DRUGS (2)
  1. REMICADE [Suspect]
     Active Substance: INFLIXIMAB
     Indication: Crohn^s disease
     Dosage: LAST INFUSION WAS ON 03-MAY-2023
     Route: 041
     Dates: start: 20200326
  2. REMICADE [Suspect]
     Active Substance: INFLIXIMAB
     Dosage: LAST INFUSION WAS ON 03-MAY-2023
     Route: 041
     Dates: start: 20160301

REACTIONS (2)
  - Malignant melanoma [Recovered/Resolved]
  - Inappropriate schedule of product administration [Unknown]

NARRATIVE: CASE EVENT DATE: 20221107
